FAERS Safety Report 5704298-9 (Version None)
Quarter: 2008Q2

REPORT INFORMATION
  Report Type: 
  Country: None (occurrence: None)
  Receive Date: 20080414
  Receipt Date: 20080404
  Transmission Date: 20081010
  Serious: Yes (Hospitalization)
  Sender: FDA-Public Use
  Company Number: GB-WYE-G01283308

PATIENT
  Sex: Female

DRUGS (1)
  1. PREMARIN [Suspect]
     Dosage: 0.625MG, FREQUENCY UNKNOWN
     Route: 048
     Dates: start: 19930101, end: 20080301

REACTIONS (3)
  - DRUG WITHDRAWAL SYNDROME [None]
  - JAUNDICE [None]
  - LIVER FUNCTION TEST ABNORMAL [None]
